FAERS Safety Report 20936559 (Version 1)
Quarter: 2022Q2

REPORT INFORMATION
  Report Type: Report from Study
  Country: AU (occurrence: AU)
  Receive Date: 20220609
  Receipt Date: 20220609
  Transmission Date: 20220721
  Serious: Yes (Death, Other)
  Sender: FDA-Public Use
  Company Number: AU-SUN PHARMACEUTICAL INDUSTRIES LTD-2022RR-340107

PATIENT
  Sex: Female

DRUGS (7)
  1. MORPHINE [Suspect]
     Active Substance: MORPHINE
     Indication: Abdominal pain
     Dosage: 2.5-10 MG ONCE ONLY
     Route: 042
  2. MORPHINE [Suspect]
     Active Substance: MORPHINE
     Dosage: 0.09 MG/L, UNK
     Route: 042
  3. MORPHINE [Suspect]
     Active Substance: MORPHINE
     Dosage: 4 X 2.5 MILLIGRAM, UNK
     Route: 042
  4. TEMAZEPAM [Suspect]
     Active Substance: TEMAZEPAM
     Indication: Abdominal pain
     Dosage: 20 MILLIGRAM, UNK
     Route: 065
  5. MEPERIDINE [Suspect]
     Active Substance: MEPERIDINE
     Indication: Abdominal pain
     Dosage: 100 MILLIGRAM ONCE ONLY
     Route: 030
  6. MEPERIDINE [Suspect]
     Active Substance: MEPERIDINE
     Dosage: 0.7 MG/L UNK
     Route: 030
  7. MEPERIDINE [Suspect]
     Active Substance: MEPERIDINE
     Dosage: 100 MILLIGRAM, UNK
     Route: 030

REACTIONS (1)
  - Toxicity to various agents [Fatal]
